FAERS Safety Report 4634152-5 (Version None)
Quarter: 2005Q2

REPORT INFORMATION
  Report Type: 
  Country: None (occurrence: None)
  Receive Date: 20050413
  Receipt Date: 20041022
  Transmission Date: 20051028
  Serious: Yes (Hospitalization, Disabling, Other)
  Sender: FDA-Public Use
  Company Number: US-MERCK-0410USA03811

PATIENT
  Age: 59 Year
  Sex: Female

DRUGS (6)
  1. VIOXX [Suspect]
     Indication: SWELLING
     Route: 048
     Dates: start: 19990101, end: 20020801
  2. VIOXX [Suspect]
     Route: 048
     Dates: start: 20020801, end: 20021001
  3. VIOXX [Suspect]
     Route: 048
     Dates: start: 20021001, end: 20030101
  4. VIOXX [Suspect]
     Indication: INFLAMMATION
     Route: 048
     Dates: start: 19990101, end: 20020801
  5. VIOXX [Suspect]
     Route: 048
     Dates: start: 20020801, end: 20021001
  6. VIOXX [Suspect]
     Route: 048
     Dates: start: 20021001, end: 20030101

REACTIONS (16)
  - AMNESIA [None]
  - ARTHRALGIA [None]
  - ARTHROPATHY [None]
  - ASTHENIA [None]
  - BLINDNESS [None]
  - CEREBROVASCULAR ACCIDENT [None]
  - DIZZINESS [None]
  - DYSGRAPHIA [None]
  - HEMIPARESIS [None]
  - HYPERTENSION [None]
  - KNEE ARTHROPLASTY [None]
  - MACULAR DEGENERATION [None]
  - MENTAL IMPAIRMENT [None]
  - PRESCRIBED OVERDOSE [None]
  - TRANSIENT ISCHAEMIC ATTACK [None]
  - WALKING DISABILITY [None]
